FAERS Safety Report 6880586-8 (Version None)
Quarter: 2010Q3

REPORT INFORMATION
  Report Type: 
  Country: None (occurrence: None)
  Receive Date: 20100727
  Receipt Date: 20090821
  Transmission Date: 20110219
  Serious: No
  Sender: FDA-Public Use
  Company Number: A0804793A

PATIENT
  Sex: Female

DRUGS (4)
  1. ZANTAC [Suspect]
     Route: 048
  2. PEPCID [Suspect]
  3. PLETAL [Concomitant]
  4. ASPIRIN [Concomitant]

REACTIONS (1)
  - DRUG INEFFECTIVE [None]
